FAERS Safety Report 4713299-9 (Version None)
Quarter: 2005Q3

REPORT INFORMATION
  Report Type: 
  Country: None (occurrence: None)
  Receive Date: 20050713
  Receipt Date: 20040819
  Transmission Date: 20060218
  Serious: Yes (Hospitalization, Other)
  Sender: FDA-Public Use
  Company Number: US-GLAXOSMITHKLINE-A0523750A

PATIENT
  Age: 23 Year
  Sex: Female

DRUGS (6)
  1. PAXIL [Suspect]
     Indication: SOCIAL PHOBIA
     Dosage: 30TAB SINGLE DOSE
     Route: 048
     Dates: start: 20040106, end: 20040106
  2. PAXIL [Suspect]
     Indication: ANXIETY
     Dosage: 80MG UNKNOWN
     Route: 048
     Dates: start: 20030901, end: 20040101
  3. DOXYCLINE [Concomitant]
  4. BIRTH CONTROL PILLS [Concomitant]
  5. DIPROLENE [Concomitant]
  6. LEXAPRO [Concomitant]
     Indication: ANXIETY
     Dosage: 20MG UNKNOWN
     Route: 065
     Dates: start: 20040101, end: 20040301

REACTIONS (12)
  - ANXIETY [None]
  - CONVULSION [None]
  - DEPRESSION [None]
  - DISABILITY [None]
  - DISSOCIATION [None]
  - DRUG WITHDRAWAL SYNDROME [None]
  - EMOTIONAL DISORDER [None]
  - INSOMNIA [None]
  - NERVOUSNESS [None]
  - OVERDOSE [None]
  - SUICIDAL IDEATION [None]
  - SUICIDE ATTEMPT [None]
